FAERS Safety Report 25351847 (Version 1)
Quarter: 2025Q2

REPORT INFORMATION
  Report Type: Spontaneous
  Country: RU (occurrence: RU)
  Receive Date: 20250523
  Receipt Date: 20250523
  Transmission Date: 20250716
  Serious: No
  Sender: ANI
  Company Number: RU-ANIPHARMA-022873

PATIENT
  Age: 83 Year
  Sex: Female

DRUGS (2)
  1. FLUVOXAMINE MALEATE [Suspect]
     Active Substance: FLUVOXAMINE MALEATE
     Indication: Product used for unknown indication
     Route: 048
  2. 4-AMINO-3-PHENYLBUTYRIC ACID [Concomitant]
     Active Substance: 4-AMINO-3-PHENYLBUTYRIC ACID
     Indication: Product used for unknown indication

REACTIONS (5)
  - Malaise [Unknown]
  - Insomnia [Unknown]
  - Poor quality sleep [Unknown]
  - Tinnitus [Unknown]
  - Nightmare [Unknown]
